FAERS Safety Report 6013122-9 (Version None)
Quarter: 2008Q4

REPORT INFORMATION
  Report Type: 
  Country: None (occurrence: None)
  Receive Date: 20081219
  Receipt Date: 20081209
  Transmission Date: 20090506
  Serious: Yes (Other)
  Sender: FDA-Public Use
  Company Number: US-BIOGENIDEC-206848

PATIENT
  Age: 57 Year
  Sex: Female

DRUGS (19)
  1. AVONEX [Suspect]
     Indication: MULTIPLE SCLEROSIS
     Route: 030
     Dates: start: 20000204, end: 20040924
  2. AVONEX [Suspect]
     Route: 030
     Dates: start: 20060102, end: 20060828
  3. PROZAC [Concomitant]
     Indication: DRUG USE FOR UNKNOWN INDICATION
     Dates: start: 20040713
  4. BACLOFEN [Concomitant]
     Indication: DRUG USE FOR UNKNOWN INDICATION
     Dates: start: 20040713
  5. PROVIGIL [Concomitant]
     Indication: DRUG USE FOR UNKNOWN INDICATION
     Dates: start: 20050516
  6. FOSAMAX [Concomitant]
     Indication: DRUG USE FOR UNKNOWN INDICATION
     Dates: start: 20040713
  7. VICODIN [Concomitant]
     Indication: DRUG USE FOR UNKNOWN INDICATION
  8. CLINDAMYCIN [Concomitant]
     Indication: DRUG USE FOR UNKNOWN INDICATION
  9. ZOFRAN [Concomitant]
     Indication: NAUSEA
     Dates: start: 20041220
  10. PROMETHAZINE [Concomitant]
     Indication: DRUG USE FOR UNKNOWN INDICATION
  11. NEULASTA [Concomitant]
     Indication: DRUG USE FOR UNKNOWN INDICATION
     Dates: start: 20041220
  12. CYTOXAN [Concomitant]
     Indication: DRUG USE FOR UNKNOWN INDICATION
     Dates: start: 20041220
  13. DOXYRUBICIN HCL [Concomitant]
     Indication: DRUG USE FOR UNKNOWN INDICATION
     Dates: start: 20041220
  14. ARIMIDEX [Concomitant]
     Indication: DRUG USE FOR UNKNOWN INDICATION
  15. ^PROVIDAL^ [Concomitant]
     Indication: DRUG USE FOR UNKNOWN INDICATION
  16. ^SOLSUMAX^ [Concomitant]
     Indication: DRUG USE FOR UNKNOWN INDICATION
  17. MEGESTROL ACETATE [Concomitant]
     Indication: DRUG USE FOR UNKNOWN INDICATION
  18. CALCIUM [Concomitant]
     Indication: DRUG USE FOR UNKNOWN INDICATION
  19. VITAMIN D [Concomitant]
     Indication: DRUG USE FOR UNKNOWN INDICATION

REACTIONS (4)
  - BREAST CANCER [None]
  - DEPRESSION [None]
  - GAIT DISTURBANCE [None]
  - MULTIPLE SCLEROSIS RELAPSE [None]
